FAERS Safety Report 9752469 (Version 1)
Quarter: 2013Q4

REPORT INFORMATION
  Report Type: Spontaneous
  Country: US (occurrence: US)
  Receive Date: 20131213
  Receipt Date: 20131213
  Transmission Date: 20140711
  Serious: No
  Sender: FDA-Public Use
  Company Number: US-BAYER-2013-152499

PATIENT
  Age: 82 Year
  Sex: Female
  Weight: 59.86 kg

DRUGS (7)
  1. ALEVE GELCAPS [Suspect]
     Indication: ARTHRITIS
     Dosage: 2 DF, QD
     Route: 048
     Dates: start: 201311, end: 20131211
  2. COQ10 [Concomitant]
  3. VITAMIN C [Concomitant]
  4. CENTRUM [Concomitant]
  5. CHONDROITIN W/GLUCOSAMINE [Concomitant]
  6. NEFAZODONE HCL [Concomitant]
  7. DONEPEZIL [Concomitant]

REACTIONS (3)
  - Drug ineffective [None]
  - Incorrect drug administration duration [None]
  - Drug ineffective [None]
